FAERS Safety Report 4404688-0 (Version None)
Quarter: 2004Q3

REPORT INFORMATION
  Report Type: 
  Country: None (occurrence: None)
  Receive Date: 20040720
  Receipt Date: 20040318
  Transmission Date: 20050211
  Serious: No
  Sender: FDA-Public Use
  Company Number: LUP-0006 (0) 2004-01217

PATIENT
  Age: 61 Year
  Sex: Female
  Weight: 67.586 kg

DRUGS (9)
  1. CEFUROXIME AXETIL [Suspect]
     Indication: SINUSITIS
     Dosage: 500 MG (250 MG, 2 IN 1 D), ORAL
     Route: 048
     Dates: start: 20040205, end: 20040210
  2. PULMICORT [Concomitant]
  3. SYNTHROID [Concomitant]
  4. NASONEX [Concomitant]
  5. ASTELLIN (AZELASTINE HYDROCHLORIDE) [Concomitant]
  6. FLUORADIL [Concomitant]
  7. CEFTIN [Concomitant]
  8. CEFZIL [Concomitant]
  9. AMOXICILLIN [Concomitant]

REACTIONS (3)
  - PALPITATIONS [None]
  - PRURITUS GENERALISED [None]
  - SWELLING FACE [None]
